FAERS Safety Report 5612881-4 (Version None)
Quarter: 2008Q1

REPORT INFORMATION
  Report Type: 
  Country: None (occurrence: None)
  Receive Date: 20080204
  Receipt Date: 20080128
  Transmission Date: 20080703
  Serious: Yes (Other)
  Sender: FDA-Public Use
  Company Number: FR-BOEHRINGER INGELHEIM GMBH, GERMANY-2008-DE-00230GD

PATIENT
  Age: 73 Year
  Sex: Male

DRUGS (3)
  1. PREDNISONE TAB [Suspect]
     Indication: INTERSTITIAL LUNG DISEASE
     Dates: start: 20060101
  2. PREDNISONE TAB [Suspect]
     Indication: ALLERGIC RESPIRATORY DISEASE
  3. PREDNISONE TAB [Suspect]

REACTIONS (3)
  - CONDITION AGGRAVATED [None]
  - DRUG INEFFECTIVE [None]
  - DRUG RESISTANCE [None]
